FAERS Safety Report 7240176-4 (Version None)
Quarter: 2011Q1

REPORT INFORMATION
  Report Type: 
  Country: None (occurrence: None)
  Receive Date: 20110124
  Receipt Date: 20101228
  Transmission Date: 20110831
  Serious: Yes (Hospitalization, Other)
  Sender: FDA-Public Use
  Company Number: NL-PFIZER INC-2010180720

PATIENT
  Sex: Female

DRUGS (1)
  1. STEDIRIL-30 [Suspect]
     Dosage: UNK

REACTIONS (2)
  - OVERWEIGHT [None]
  - GASTRIC BYPASS [None]
